FAERS Safety Report 15413700 (Version 4)
Quarter: 2019Q4

REPORT INFORMATION
  Report Type: Report from Study
  Country: CZ (occurrence: CZ)
  Receive Date: 20180921
  Receipt Date: 20191106
  Transmission Date: 20200122
  Serious: Yes (Hospitalization)
  Sender: FDA-Public Use
  Company Number: CZ-EISAI MEDICAL RESEARCH-EC-2018-045186

PATIENT
  Age: 73 Year
  Sex: Male
  Weight: 77.4 kg

DRUGS (17)
  1. PURINOL [Concomitant]
     Active Substance: ALLOPURINOL
  2. FENTANYLUM [Concomitant]
  3. LENVATINIB [Suspect]
     Active Substance: LENVATINIB
     Route: 048
     Dates: start: 20181119
  4. EVEROLIMUS. [Suspect]
     Active Substance: EVEROLIMUS
     Indication: CLEAR CELL RENAL CELL CARCINOMA
     Route: 048
     Dates: start: 20180814, end: 20180913
  5. LENVATINIB [Suspect]
     Active Substance: LENVATINIB
     Route: 048
     Dates: start: 20180920, end: 20181111
  6. LENVATINIB [Suspect]
     Active Substance: LENVATINIB
     Indication: CLEAR CELL RENAL CELL CARCINOMA
     Route: 048
     Dates: start: 20180814, end: 20180913
  7. EVEROLIMUS. [Suspect]
     Active Substance: EVEROLIMUS
     Route: 048
     Dates: start: 20180920, end: 20181111
  8. RILMENIDIN [Concomitant]
     Active Substance: RILMENIDINE
  9. RHEFLUIN [Concomitant]
  10. KYLOTAN [Concomitant]
  11. NEBIVOLOL. [Concomitant]
     Active Substance: NEBIVOLOL
  12. TRAJENTA [Concomitant]
     Active Substance: LINAGLIPTIN
  13. THEOPHYLLINUM [Concomitant]
  14. FINPROS [Concomitant]
     Active Substance: FINASTERIDE
  15. LENVATINIB [Suspect]
     Active Substance: LENVATINIB
     Route: 048
     Dates: end: 20191031
  16. EVEROLIMUS. [Suspect]
     Active Substance: EVEROLIMUS
     Route: 048
     Dates: start: 20181119, end: 20191031
  17. ANOPYRIN [Concomitant]
     Active Substance: ASPIRIN

REACTIONS (5)
  - Dehydration [Recovered/Resolved]
  - Pharyngitis [Recovered/Resolved]
  - Abdominal pain [Recovered/Resolved]
  - Decreased appetite [Recovered/Resolved]
  - Fatigue [Recovered/Resolved]

NARRATIVE: CASE EVENT DATE: 20180913
